FAERS Safety Report 20852197 (Version 2)
Quarter: 2022Q2

REPORT INFORMATION
  Report Type: Spontaneous
  Country: CZ (occurrence: CZ)
  Receive Date: 20220520
  Receipt Date: 20220609
  Transmission Date: 20220721
  Serious: Yes (Other)
  Sender: FDA-Public Use
  Company Number: CZ-TEVA-2022-CZ-2037177

PATIENT
  Age: 71 Year
  Sex: Male

DRUGS (7)
  1. OXALIPLATIN [Suspect]
     Active Substance: OXALIPLATIN
     Indication: Colorectal cancer
     Dosage: FOLFOX-6 WITH CETUXIMAB 6 CYCLES
     Route: 065
     Dates: start: 201802, end: 2018
  2. LEUCOVORIN [Suspect]
     Active Substance: LEUCOVORIN
     Indication: Colorectal cancer
     Dosage: FOLFOX-6 WITH CETUXIMAB 6 CYCLES
     Route: 065
     Dates: start: 201802, end: 2018
  3. LEUCOVORIN [Suspect]
     Active Substance: LEUCOVORIN
     Dosage: SECOND-LINE CHEMOTHERAPY WITH FOLFIRI, 22 CYCLES
     Route: 065
     Dates: start: 201906, end: 202006
  4. FLUOROURACIL [Suspect]
     Active Substance: FLUOROURACIL
     Indication: Colorectal cancer
     Dosage: WITH THE FOLFOX-6 REGIMEN WITH CETUXIMAB
     Route: 065
     Dates: start: 201802, end: 2018
  5. FLUOROURACIL [Suspect]
     Active Substance: FLUOROURACIL
     Dosage: SECOND-LINE CHEMOTHERAPY WITH FOLFIRI
     Route: 065
     Dates: start: 201906, end: 202006
  6. IRINOTECAN [Suspect]
     Active Substance: IRINOTECAN
     Indication: Colorectal cancer
     Dosage: SECOND-LINE CHEMOTHERAPY WITH FOLFIRI
     Route: 065
     Dates: start: 201906, end: 202006
  7. CETUXIMAB [Concomitant]
     Active Substance: CETUXIMAB
     Indication: Colorectal cancer
     Route: 065
     Dates: start: 201802, end: 201809

REACTIONS (3)
  - Neuropathy peripheral [Recovered/Resolved]
  - Drug intolerance [Unknown]
  - Drug intolerance [Unknown]

NARRATIVE: CASE EVENT DATE: 20180101
